FAERS Safety Report 7220014-6 (Version None)
Quarter: 2011Q1

REPORT INFORMATION
  Report Type: 
  Country: None (occurrence: None)
  Receive Date: 20110111
  Receipt Date: 20091228
  Transmission Date: 20110831
  Serious: No
  Sender: FDA-Public Use
  Company Number: US-PFIZER INC-2009315360

PATIENT
  Sex: Female

DRUGS (1)
  1. ATENOLOL [Suspect]
     Dosage: UNK

REACTIONS (2)
  - ABDOMINAL DISCOMFORT [None]
  - BURNING SENSATION [None]
